FAERS Safety Report 10349585 (Version 1)
Quarter: 2014Q3

REPORT INFORMATION
  Report Type: Spontaneous
  Country: IT (occurrence: None)
  Receive Date: 20140728
  Receipt Date: 20140728
  Transmission Date: 20150326
  Serious: Yes (Hospitalization)
  Sender: FDA-Public Use
  Company Number: 2014AP003714

PATIENT
  Age: 32 Year
  Sex: Male

DRUGS (2)
  1. CLARITHROMYCIN (CLARITHROMYCIN) TABLET, 250MG [Suspect]
     Active Substance: CLARITHROMYCIN
     Indication: EAR INFECTION
     Route: 048
     Dates: start: 20140701, end: 20140708
  2. PREDNISONE (PREDNISONE) [Suspect]
     Active Substance: PREDNISONE
     Indication: EAR INFECTION
     Route: 048
     Dates: start: 20140701, end: 20140708

REACTIONS (1)
  - Gastritis [None]

NARRATIVE: CASE EVENT DATE: 20140708
